FAERS Safety Report 15785838 (Version 1)
Quarter: 2019Q1

REPORT INFORMATION
  Report Type: Spontaneous
  Country: US (occurrence: US)
  Receive Date: 20190101
  Receipt Date: 20190101
  Transmission Date: 20190417
  Serious: No
  Sender: FDA-Public Use
  Company Number: None

PATIENT
  Age: 51 Year
  Sex: Female
  Weight: 45.45 kg

DRUGS (1)
  1. BOTOX [Suspect]
     Active Substance: ONABOTULINUMTOXINA
     Indication: MIGRAINE
     Dates: start: 20181220

REACTIONS (6)
  - Musculoskeletal stiffness [None]
  - Vision blurred [None]
  - Headache [None]
  - Neck pain [None]
  - Eyelid ptosis [None]
  - Dry eye [None]

NARRATIVE: CASE EVENT DATE: 20181227
